FAERS Safety Report 20593721 (Version 1)
Quarter: 2022Q1

REPORT INFORMATION
  Report Type: Other
  Country: CN (occurrence: None)
  Receive Date: 20220315
  Receipt Date: 20220315
  Transmission Date: 20220423
  Serious: Yes (Death, Other)
  Sender: FDA-Public Use
  Company Number: CN-ROCHE-3048430

PATIENT
  Age: 43 Year
  Sex: Female

DRUGS (8)
  1. BEVACIZUMAB [Suspect]
     Active Substance: BEVACIZUMAB
     Indication: Adenosquamous cell lung cancer
     Dosage: DAY 1
     Route: 065
     Dates: start: 202007, end: 202011
  2. BEVACIZUMAB [Suspect]
     Active Substance: BEVACIZUMAB
     Dosage: DAY 1
     Route: 065
     Dates: start: 202011
  3. PEMETREXED [Suspect]
     Active Substance: PEMETREXED
     Indication: Adenosquamous cell lung cancer
     Dosage: DAY 1
     Route: 065
     Dates: start: 202007, end: 202011
  4. CARBOPLATIN [Suspect]
     Active Substance: CARBOPLATIN
     Indication: Adenosquamous cell lung cancer
     Dosage: DAY 1
     Route: 065
     Dates: start: 202007, end: 202011
  5. CRIZOTINIB [Suspect]
     Active Substance: CRIZOTINIB
     Indication: Adenosquamous cell lung cancer
     Route: 048
     Dates: start: 202003, end: 202007
  6. CRIZOTINIB [Suspect]
     Active Substance: CRIZOTINIB
     Route: 048
     Dates: start: 202011
  7. CISPLATIN [Suspect]
     Active Substance: CISPLATIN
     Indication: Adenosquamous cell lung cancer
     Dosage: DAY 1-2
     Route: 065
     Dates: start: 202011
  8. GEMCITABINE [Suspect]
     Active Substance: GEMCITABINE
     Indication: Adenosquamous cell lung cancer
     Dosage: DAY 1
     Route: 065
     Dates: start: 202011

REACTIONS (5)
  - Disease progression [Fatal]
  - Myelosuppression [Unknown]
  - Metastases to lung [Unknown]
  - Metastases to liver [Unknown]
  - Nausea [Unknown]
